FAERS Safety Report 17973942 (Version 1)
Quarter: 2020Q3

REPORT INFORMATION
  Report Type: Spontaneous
  Country: AR (occurrence: AR)
  Receive Date: 20200702
  Receipt Date: 20200702
  Transmission Date: 20201103
  Serious: Yes (Other)
  Sender: FDA-Public Use
  Company Number: AR-PFIZER INC-2020252030

PATIENT
  Age: 59 Year
  Sex: Male

DRUGS (1)
  1. SUTENT [Suspect]
     Active Substance: SUNITINIB MALATE
     Indication: METASTATIC RENAL CELL CARCINOMA
     Dosage: 50 MG, DAILY
     Dates: start: 20190915

REACTIONS (10)
  - Skin disorder [Unknown]
  - Gastrooesophageal reflux disease [Unknown]
  - Gastric disorder [Unknown]
  - Bloody discharge [Unknown]
  - Male reproductive tract disorder [Unknown]
  - Gastritis [Unknown]
  - Oesophageal disorder [Unknown]
  - Internal haemorrhage [Unknown]
  - Limb injury [Unknown]
  - Off label use [Unknown]
